FAERS Safety Report 5277534-3 (Version None)
Quarter: 2007Q1

REPORT INFORMATION
  Report Type: 
  Country: None (occurrence: None)
  Receive Date: 20070327
  Receipt Date: 20070316
  Transmission Date: 20070707
  Serious: Yes (Other)
  Sender: FDA-Public Use
  Company Number: JP-ROCHE-488517

PATIENT
  Age: 32 Year
  Sex: Female

DRUGS (4)
  1. TAMIFLU [Suspect]
     Dosage: ORAL FORMULATION (NOT OTHERWISE SPECIFIED)
     Route: 048
     Dates: start: 20070312, end: 20070313
  2. KAKKON-TO [Concomitant]
  3. OBELON [Concomitant]
     Dosage: ROUTE REPORTED AS INTRAVENOUS DRIP.
     Route: 042
  4. LINCOCIN [Concomitant]
     Dosage: ROUTE REPORTED AS INTRAVENOUS DRIP.
     Route: 042

REACTIONS (3)
  - AMNESIA [None]
  - ARTHRALGIA [None]
  - HEADACHE [None]
